FAERS Safety Report 9325989 (Version 2)
Quarter: 2013Q2

REPORT INFORMATION
  Report Type: Spontaneous
  Country: DE (occurrence: DE)
  Receive Date: 20130604
  Receipt Date: 20130620
  Transmission Date: 20140414
  Serious: Yes (Other)
  Sender: FDA-Public Use
  Company Number: PHHY2013DE054294

PATIENT
  Age: 58 Year
  Sex: Female

DRUGS (2)
  1. DICLOFENAC [Suspect]
     Indication: ARTHROPATHY
     Route: 048
  2. ETANERCEPT [Suspect]
     Indication: ARTHROPATHY
     Dosage: 1 DF, QW
     Route: 058

REACTIONS (10)
  - Pyoderma gangrenosum [Recovering/Resolving]
  - Colitis ulcerative [Unknown]
  - Eosinophilia [Unknown]
  - Skin ulcer [Unknown]
  - Subcutaneous abscess [Unknown]
  - Lymphocytic infiltration [Unknown]
  - Inflammation [Unknown]
  - Skin lesion [Unknown]
  - Erythema [Unknown]
  - Colitis microscopic [Unknown]
